FAERS Safety Report 15464678 (Version 5)
Quarter: 2019Q3

REPORT INFORMATION
  Report Type: Report from Study
  Country: JP (occurrence: JP)
  Receive Date: 20181004
  Receipt Date: 20190909
  Transmission Date: 20191004
  Serious: Yes (Hospitalization, Disabling, Other)
  Sender: FDA-Public Use
  Company Number: JP-ACTELION-A-CH2018-179731

PATIENT
  Age: 72 Year
  Sex: Female
  Weight: 72 kg

DRUGS (20)
  1. ADCIRCA [Concomitant]
     Active Substance: TADALAFIL
  2. LUPRAC [Concomitant]
     Active Substance: TORSEMIDE
  3. NEXAVAR [Concomitant]
     Active Substance: SORAFENIB
  4. GLUCONSAN K [Concomitant]
     Active Substance: POTASSIUM GLUCONATE
  5. LIVALO [Concomitant]
     Active Substance: PITAVASTATIN CALCIUM
  6. CARELOAD [Concomitant]
     Active Substance: BERAPROST SODIUM
  7. MERISLON [Concomitant]
     Active Substance: BETAHISTINE MESILATE
  8. EBRANTIL [Concomitant]
     Active Substance: URAPIDIL
     Dosage: UNK
     Dates: start: 201801
  9. OPSUMIT [Suspect]
     Active Substance: MACITENTAN
     Indication: PULMONARY ARTERIAL HYPERTENSION
     Dosage: 10 MG, QD
     Route: 048
     Dates: start: 20160609
  10. FOSAMAC [Concomitant]
     Active Substance: ALENDRONATE SODIUM
  11. PREDNISOLONE. [Concomitant]
     Active Substance: PREDNISOLONE
  12. DEPAS [Concomitant]
  13. THYRADIN [Concomitant]
     Active Substance: LEVOTHYROXINE
  14. BETANIS [Concomitant]
     Active Substance: MIRABEGRON
     Dosage: UNK
     Dates: start: 201806
  15. ALDACTONE A [Concomitant]
     Active Substance: SPIRONOLACTONE
  16. OXYGEN. [Concomitant]
     Active Substance: OXYGEN
  17. BAKTAR [Concomitant]
     Active Substance: SULFAMETHOXAZOLE\TRIMETHOPRIM
  18. PHELLOBERIN [Concomitant]
     Active Substance: BERBERINE\GERANIUM
  19. FERROUS SULFATE. [Concomitant]
     Active Substance: FERROUS SULFATE
  20. TAKEPRON [Concomitant]
     Active Substance: LANSOPRAZOLE

REACTIONS (11)
  - Arthralgia [Recovered/Resolved]
  - Fall [Recovered/Resolved]
  - Intervertebral disc protrusion [Recovered/Resolved]
  - Collagen disorder [Unknown]
  - Hip arthroplasty [Unknown]
  - Back pain [Recovered/Resolved]
  - Infection [Unknown]
  - Osteonecrosis [Recovered/Resolved]
  - White blood cell count increased [Recovered/Resolved]
  - Urinary incontinence [Unknown]
  - Rib fracture [Recovered/Resolved]

NARRATIVE: CASE EVENT DATE: 201708
